FAERS Safety Report 4991396-0 (Version None)
Quarter: 2006Q2

REPORT INFORMATION
  Report Type: 
  Country: None (occurrence: None)
  Receive Date: 20060501
  Receipt Date: 20060418
  Transmission Date: 20061013
  Serious: Yes (Other)
  Sender: FDA-Public Use
  Company Number: 200610309BNE

PATIENT
  Age: 62 Year
  Sex: Male

DRUGS (1)
  1. LEVITRA [Suspect]
     Dates: start: 20060208

REACTIONS (2)
  - BALANCE DISORDER [None]
  - HYPOAESTHESIA [None]
